FAERS Safety Report 5532382-1 (Version None)
Quarter: 2007Q4

REPORT INFORMATION
  Report Type: 
  Country: None (occurrence: None)
  Receive Date: 20071203
  Receipt Date: 20071121
  Transmission Date: 20080405
  Serious: Yes (Other)
  Sender: FDA-Public Use
  Company Number: US-PFIZER INC-2007025714

PATIENT
  Sex: Female
  Weight: 45.8 kg

DRUGS (9)
  1. CHANTIX [Suspect]
     Indication: SMOKING CESSATION THERAPY
  2. SPIRIVA [Suspect]
  3. ADVAIR DISKUS 100/50 [Suspect]
  4. ALBUTEROL [Suspect]
  5. SEROQUEL [Concomitant]
  6. NORVASC [Concomitant]
  7. LIPITOR [Concomitant]
  8. TRAMADOL HCL [Concomitant]
  9. CITALOPRAM [Concomitant]

REACTIONS (6)
  - FUNGAL INFECTION [None]
  - LARYNGITIS [None]
  - NAUSEA [None]
  - STOMACH DISCOMFORT [None]
  - VOMITING [None]
  - WRONG TECHNIQUE IN DRUG USAGE PROCESS [None]
